FAERS Safety Report 17423912 (Version 6)
Quarter: 2020Q2

REPORT INFORMATION
  Report Type: Report from Study
  Country: US (occurrence: US)
  Receive Date: 20200217
  Receipt Date: 20200615
  Transmission Date: 20200713
  Serious: No
  Sender: FDA-Public Use
  Company Number: NVSC2020US040199

PATIENT
  Sex: Female
  Weight: 49.89 kg

DRUGS (5)
  1. TREPROSTINIL. [Suspect]
     Active Substance: TREPROSTINIL
     Dosage: 1 DF (15 NG/KG/MIN)
     Route: 042
  2. SILDENAFIL CITRATE. [Concomitant]
     Active Substance: SILDENAFIL CITRATE
     Indication: PRODUCT USED FOR UNKNOWN INDICATION
     Dosage: UNK
     Route: 065
  3. TREPROSTINIL. [Suspect]
     Active Substance: TREPROSTINIL
     Indication: PULMONARY ARTERIAL HYPERTENSION
     Dosage: 1 DF (15 NG/KG/MIN)
     Route: 042
     Dates: start: 20200106
  4. OPSUMIT [Concomitant]
     Active Substance: MACITENTAN
     Indication: PRODUCT USED FOR UNKNOWN INDICATION
     Dosage: UNK
     Route: 065
  5. TREPROSTINIL. [Suspect]
     Active Substance: TREPROSTINIL
     Dosage: 1 DF (15 NG/KG/MIN)
     Route: 042

REACTIONS (14)
  - Pain in jaw [Unknown]
  - Hypotension [Unknown]
  - Joint swelling [Unknown]
  - Fatigue [Unknown]
  - Productive cough [Unknown]
  - Hypertension [Unknown]
  - Pain in extremity [Unknown]
  - Increased appetite [Unknown]
  - Oedema peripheral [Not Recovered/Not Resolved]
  - Dyspnoea [Recovering/Resolving]
  - Cough [Recovered/Resolved]
  - Dyspnoea exertional [Unknown]
  - Arthralgia [Unknown]
  - Weight increased [Unknown]
